FAERS Safety Report 7121353-X (Version None)
Quarter: 2010Q4

REPORT INFORMATION
  Report Type: 
  Country: None (occurrence: None)
  Receive Date: 20101124
  Receipt Date: 20101117
  Transmission Date: 20110411
  Serious: Yes (Other)
  Sender: FDA-Public Use
  Company Number: US-BAYER-201038205NA

PATIENT
  Age: 57 Year
  Sex: Female
  Weight: 57 kg

DRUGS (2)
  1. ULTRAVIST 300 [Suspect]
     Indication: COMPUTERISED TOMOGRAM THORAX
     Dosage: TOTAL DAILY DOSE: 100 ML  UNIT DOSE: 100 ML
     Route: 042
     Dates: start: 20101022, end: 20101022
  2. DIPHENHYDRAMINE [Concomitant]
     Dosage: TOTAL DAILY DOSE: 50  MG
     Route: 042
     Dates: start: 20101022, end: 20101022

REACTIONS (3)
  - NASAL CONGESTION [None]
  - OROPHARYNGEAL DISCOMFORT [None]
  - SNEEZING [None]
